FAERS Safety Report 4576339-6 (Version None)
Quarter: 2005Q1

REPORT INFORMATION
  Report Type: 
  Country: None (occurrence: None)
  Receive Date: 20050207
  Receipt Date: 20050128
  Transmission Date: 20050727
  Serious: Yes (Other)
  Sender: FDA-Public Use
  Company Number: ESWYE337113JAN05

PATIENT
  Age: 32 Year
  Sex: Male

DRUGS (1)
  1. VANDRAL RETARD (VENLAFAXINE HYDROCHLORIDE, CAPSULE, EXTENDED RELEASE, [Suspect]
     Indication: ANXIETY
     Dosage: 150 MG 1X PER 1 DAY, ORAL
     Route: 048
     Dates: start: 20031001, end: 20040801

REACTIONS (1)
  - INFERTILITY MALE [None]
